FAERS Safety Report 23286545 (Version 2)
Quarter: 2024Q1

REPORT INFORMATION
  Report Type: Spontaneous
  Country: US (occurrence: None)
  Receive Date: 20231212
  Receipt Date: 20240118
  Transmission Date: 20240409
  Serious: No
  Sender: FDA-Public Use
  Company Number: 2023A273738

PATIENT
  Sex: Female

DRUGS (1)
  1. CALQUENCE [Suspect]
     Active Substance: ACALABRUTINIB
     Route: 048

REACTIONS (5)
  - Faeces discoloured [Unknown]
  - Dry throat [Unknown]
  - Diarrhoea [Unknown]
  - Pain in extremity [Unknown]
  - Abdominal pain upper [Unknown]
